FAERS Safety Report 18430768 (Version 2)
Quarter: 2021Q1

REPORT INFORMATION
  Report Type: Report from Study
  Country: US (occurrence: US)
  Receive Date: 20201027
  Receipt Date: 20210206
  Transmission Date: 20210419
  Serious: Yes (Hospitalization)
  Sender: FDA-Public Use
  Company Number: US-TEVA-2020-US-1841978

PATIENT
  Age: 24 Year
  Sex: Female

DRUGS (2)
  1. ABSORICA [Suspect]
     Active Substance: ISOTRETINOIN
     Route: 065
  2. CLARAVIS [Suspect]
     Active Substance: ISOTRETINOIN
     Route: 065

REACTIONS (1)
  - Colitis ulcerative [Recovered/Resolved]
